FAERS Safety Report 14838892 (Version 9)
Quarter: 2019Q1

REPORT INFORMATION
  Report Type: Spontaneous
  Country: US (occurrence: US)
  Receive Date: 20180502
  Receipt Date: 20190123
  Transmission Date: 20190417
  Serious: Yes (Hospitalization, Other)
  Sender: FDA-Public Use
  Company Number: US-PFIZER INC-2018177130

PATIENT
  Age: 37 Year
  Sex: Female
  Weight: 58.97 kg

DRUGS (4)
  1. MOBEC [Concomitant]
     Active Substance: MELOXICAM
     Dosage: UNK
  2. REVATIO [Suspect]
     Active Substance: SILDENAFIL CITRATE
     Indication: PULMONARY HYPERTENSION
     Dosage: 20 MG, 3X/DAY
     Dates: start: 20171219
  3. PERCOCET [Concomitant]
     Active Substance: ACETAMINOPHEN\OXYCODONE HYDROCHLORIDE
     Dosage: 5 MG, 1X/DAY
  4. CELEBREX [Concomitant]
     Active Substance: CELECOXIB
     Dosage: UNK

REACTIONS (29)
  - Eye irritation [Unknown]
  - Ear haemorrhage [Unknown]
  - Anxiety [Unknown]
  - Oral mucosal exfoliation [Unknown]
  - Eye pruritus [Unknown]
  - Myocardial infarction [Unknown]
  - Tooth disorder [Unknown]
  - Eye infection [Unknown]
  - Infection [Unknown]
  - Ocular hyperaemia [Unknown]
  - Angina pectoris [Unknown]
  - Spinal fracture [Unknown]
  - Neoplasm malignant [Unknown]
  - Malaise [Unknown]
  - Cough [Unknown]
  - Gingival swelling [Unknown]
  - Infectious mononucleosis [Unknown]
  - Pyrexia [Unknown]
  - Injury [Unknown]
  - Immune system disorder [Unknown]
  - Systemic lupus erythematosus [Unknown]
  - Deafness [Unknown]
  - Pneumonia [Recovering/Resolving]
  - Ear infection [Unknown]
  - Epistaxis [Unknown]
  - Ear pain [Unknown]
  - Swelling face [Unknown]
  - Vaginal haemorrhage [Unknown]
  - Depression [Unknown]

NARRATIVE: CASE EVENT DATE: 201804
